FAERS Safety Report 6287414-2 (Version None)
Quarter: 2009Q3

REPORT INFORMATION
  Report Type: 
  Country: None (occurrence: None)
  Receive Date: 20090728
  Receipt Date: 20080530
  Transmission Date: 20100115
  Serious: Yes (Death)
  Sender: FDA-Public Use
  Company Number: US-TYCO HEALTHCARE/MALLINCKRODT-T200800644

PATIENT

DRUGS (1)
  1. METHADONE HCL [Suspect]

REACTIONS (1)
  - DEATH [None]
